FAERS Safety Report 4882032-2 (Version None)
Quarter: 2006Q1

REPORT INFORMATION
  Report Type: 
  Country: None (occurrence: None)
  Receive Date: 20060112
  Receipt Date: 20060103
  Transmission Date: 20060701
  Serious: Yes (Life-Threatening, Other)
  Sender: FDA-Public Use
  Company Number: 2006003995

PATIENT
  Age: 29 Year
  Sex: Female

DRUGS (4)
  1. NELFINAVIR MESILATE (NELFINAVIR MESILATE) [Suspect]
     Indication: PROPHYLAXIS AGAINST HIV INFECTION
     Dosage: (1250 MG, 2 IN 1 D), ORAL
     Route: 048
     Dates: start: 20051205, end: 20051213
  2. ZIDOVUDINE [Suspect]
     Indication: PROPHYLAXIS AGAINST HIV INFECTION
     Dosage: (250 MG, 2 IN 1 D), ORAL
     Route: 048
     Dates: start: 20051205, end: 20051213
  3. LOPERAMIDE HCL [Concomitant]
  4. DOMPERIDONE (DOMPERIDONE) [Concomitant]

REACTIONS (3)
  - CHEST DISCOMFORT [None]
  - RASH [None]
  - THROAT TIGHTNESS [None]
